FAERS Safety Report 6546748-4 (Version None)
Quarter: 2010Q1

REPORT INFORMATION
  Report Type: 
  Country: None (occurrence: None)
  Receive Date: 20100122
  Receipt Date: 20100113
  Transmission Date: 20100710
  Serious: Yes (Hospitalization, Disabling)
  Sender: FDA-Public Use
  Company Number: GB-ASTRAZENECA-2005GB00277

PATIENT
  Age: 52 Year
  Sex: Female

DRUGS (3)
  1. QUETIAPINE [Suspect]
     Indication: HYPOMANIA
     Dosage: 200 MG AND 400 MG DAILY
     Route: 048
     Dates: start: 20041130
  2. LITHIUM CARBONATE [Concomitant]
     Indication: BIPOLAR DISORDER
     Route: 048
     Dates: start: 20041130
  3. ZOPICLONE [Concomitant]
     Route: 048
     Dates: start: 20041130

REACTIONS (2)
  - DIABETES MELLITUS INADEQUATE CONTROL [None]
  - URINARY TRACT INFECTION [None]
